FAERS Safety Report 21519608 (Version 1)
Quarter: 2022Q4

REPORT INFORMATION
  Report Type: Spontaneous
  Country: US (occurrence: None)
  Receive Date: 20221028
  Receipt Date: 20221028
  Transmission Date: 20230112
  Serious: Yes (Hospitalization)
  Sender: FDA-Public Use
  Company Number: 2022A354429

PATIENT
  Age: 59 Year
  Sex: Female

DRUGS (4)
  1. BUDESONIDE\FORMOTEROL\GLYCOPYRRONIUM [Suspect]
     Active Substance: BUDESONIDE\FORMOTEROL\GLYCOPYRRONIUM
     Indication: Chronic obstructive pulmonary disease
     Dosage: 160/9/4.8MCG AS 2 PUFFS TWICE A DAY
     Route: 055
     Dates: start: 2022
  2. SYMBICORT [Suspect]
     Active Substance: BUDESONIDE\FORMOTEROL FUMARATE DIHYDRATE
     Indication: Chronic obstructive pulmonary disease
     Dosage: 160MCG/4.5MCG AS 2 PUFFS TWICE A DAY
     Route: 055
     Dates: end: 2022
  3. SYMBICORT [Suspect]
     Active Substance: BUDESONIDE\FORMOTEROL FUMARATE DIHYDRATE
     Indication: Chronic obstructive pulmonary disease
     Dosage: 160MCG/4.5MCG AS 1 PUFF TWICE A DAY.
     Route: 055
  4. ALBUTEROL [Concomitant]
     Active Substance: ALBUTEROL

REACTIONS (12)
  - Chronic obstructive pulmonary disease [Unknown]
  - Cardiac failure congestive [Recovered/Resolved]
  - Carbon dioxide increased [Unknown]
  - Respiratory syncytial virus infection [Unknown]
  - Upper respiratory tract infection [Unknown]
  - Dyspnoea [Recovered/Resolved]
  - Fluid retention [Unknown]
  - Chest discomfort [Recovered/Resolved]
  - Wrong technique in device usage process [Unknown]
  - Product use issue [Recovered/Resolved]
  - Drug ineffective [Recovered/Resolved]
  - Device malfunction [Unknown]

NARRATIVE: CASE EVENT DATE: 20210101
